FAERS Safety Report 17291921 (Version 1)
Quarter: 2020Q1

REPORT INFORMATION
  Report Type: Spontaneous
  Country: CN (occurrence: CN)
  Receive Date: 20200121
  Receipt Date: 20200121
  Transmission Date: 20200409
  Serious: Yes (Other)
  Sender: FDA-Public Use
  Company Number: CN-BAYER-2019-218273

PATIENT
  Age: 63 Year
  Sex: Female
  Weight: 51 kg

DRUGS (2)
  1. IOPROMIDE. [Suspect]
     Active Substance: IOPROMIDE
     Indication: COMPUTERISED TOMOGRAM THORAX
     Dosage: 100 ML, ONCE
     Route: 042
     Dates: start: 20191010, end: 20191010
  2. IOPROMIDE. [Suspect]
     Active Substance: IOPROMIDE
     Indication: ABDOMEN SCAN

REACTIONS (7)
  - Hypoaesthesia oral [Recovered/Resolved]
  - Ocular hyperaemia [Recovered/Resolved]
  - Palpitations [Recovered/Resolved]
  - Pruritus [Recovered/Resolved]
  - Contrast media allergy [Recovered/Resolved]
  - Pyrexia [Recovered/Resolved]
  - Blood pressure diastolic decreased [Recovered/Resolved]

NARRATIVE: CASE EVENT DATE: 20191010
